FAERS Safety Report 5734471-5 (Version None)
Quarter: 2008Q2

REPORT INFORMATION
  Report Type: 
  Country: None (occurrence: None)
  Receive Date: 20080508
  Receipt Date: 20080428
  Transmission Date: 20081010
  Serious: Yes (Hospitalization)
  Sender: FDA-Public Use
  Company Number: 2008BI011243

PATIENT
  Age: 60 Year
  Sex: Female

DRUGS (1)
  1. AVONEX [Suspect]
     Indication: MULTIPLE SCLEROSIS
     Dosage: 30 UG; QW; IM
     Route: 030
     Dates: start: 20000804

REACTIONS (8)
  - EPISTAXIS [None]
  - HYPOAESTHESIA [None]
  - IATROGENIC INJURY [None]
  - MULTIPLE SCLEROSIS [None]
  - NASAL SEPTUM DEVIATION [None]
  - NERVE INJURY [None]
  - OPHTHALMOPLEGIA [None]
  - SALIVARY GLAND CYST [None]
